FAERS Safety Report 24538299 (Version 2)
Quarter: 2024Q4

REPORT INFORMATION
  Report Type: Spontaneous
  Country: CN (occurrence: CN)
  Receive Date: 20241023
  Receipt Date: 20241029
  Transmission Date: 20250115
  Serious: Yes (Hospitalization, Other)
  Sender: ACCORD
  Company Number: CN-Accord-451852

PATIENT
  Age: 45 Year
  Sex: Female

DRUGS (7)
  1. HYDROXYCHLOROQUINE [Suspect]
     Active Substance: HYDROXYCHLOROQUINE
     Indication: Dermatomyositis
     Dosage: 0.1 G BID
  2. METHOTREXATE [Suspect]
     Active Substance: METHOTREXATE
     Indication: Dermatomyositis
     Dosage: QW
  3. METHYLPREDNISOLONE [Suspect]
     Active Substance: METHYLPREDNISOLONE
     Indication: Dermatomyositis
     Dosage: QD, ALSO RECEIVED 1000 MG QD
     Dates: start: 2022
  4. PREDNISONE [Suspect]
     Active Substance: PREDNISONE
     Indication: Dermatomyositis
     Dosage: 5-40 MG/ QD
  5. THALIDOMIDE [Concomitant]
     Active Substance: THALIDOMIDE
     Indication: Dermatomyositis
     Dosage: SHORT PERIOD
  6. IMMUNOGLOBULIN [Concomitant]
     Indication: Dermatomyositis
     Dosage: QD FOR 5 DAYS
     Route: 042
  7. HYDROXYCHLOROQUINE [Suspect]
     Active Substance: HYDROXYCHLOROQUINE
     Indication: Dermatomyositis
     Dosage: BID
     Dates: end: 2022

REACTIONS (3)
  - JC virus infection [Recovered/Resolved]
  - Progressive multifocal leukoencephalopathy [Recovered/Resolved]
  - Gerstmann^s syndrome [Recovering/Resolving]

NARRATIVE: CASE EVENT DATE: 20220101
